FAERS Safety Report 4320389-1 (Version None)
Quarter: 2004Q1

REPORT INFORMATION
  Report Type: 
  Country: None (occurrence: None)
  Receive Date: 20040317
  Receipt Date: 20040304
  Transmission Date: 20041129
  Serious: Yes (Hospitalization, Other)
  Sender: FDA-Public Use
  Company Number: 2004014761

PATIENT
  Age: 57 Year
  Sex: Male

DRUGS (11)
  1. LIPITOR [Suspect]
     Indication: HYPERLIPIDAEMIA
     Dosage: 10 MG (DAILY), ORAL
     Route: 048
     Dates: start: 20030711, end: 20031121
  2. VALPROATE SODIUM [Suspect]
     Indication: BIPOLAR I DISORDER
     Dosage: 800 MG (DAILY), ORAL
     Route: 048
     Dates: start: 20031121, end: 20031210
  3. LEVOMEPROMAZINE (LEVOMEPROMAZINE) [Suspect]
     Indication: BIPOLAR I DISORDER
     Dosage: 75 MG (DAILY), ORAL
     Route: 048
     Dates: start: 20031125, end: 20031211
  4. FLUNITRAZEPAM (FLUNITRAZEPAM) [Concomitant]
  5. ZOPICLONE (ZOPICLONE) [Concomitant]
  6. ESTAZOLAM [Concomitant]
  7. ETIZOLAM (ETIZOLAM) [Concomitant]
  8. OLANZAPINE [Concomitant]
  9. CLONAZEPAM [Concomitant]
  10. FUROSEMIDE [Concomitant]
  11. SENNA LEAF (SENNA LEAF) [Concomitant]

REACTIONS (10)
  - ALANINE AMINOTRANSFERASE INCREASED [None]
  - ASPARTATE AMINOTRANSFERASE INCREASED [None]
  - BLOOD CREATINE PHOSPHOKINASE INCREASED [None]
  - BLOOD CREATININE INCREASED [None]
  - DRUG INTERACTION [None]
  - HAEMODIALYSIS [None]
  - MUSCULAR WEAKNESS [None]
  - MYOGLOBIN BLOOD INCREASED [None]
  - PAIN IN EXTREMITY [None]
  - URINE OUTPUT DECREASED [None]
